FAERS Safety Report 8969342 (Version 1)
Quarter: 2012Q4

REPORT INFORMATION
  Report Type: 
  Country: US (occurrence: US)
  Receive Date: 20121218
  Receipt Date: 20121218
  Transmission Date: 20130627
  Serious: No
  Sender: FDA-Public Use
  Company Number: US-BRISTOL-MYERS SQUIBB COMPANY-16282519

PATIENT
  Age: 47 Year
  Sex: Female

DRUGS (1)
  1. ABILIFY [Suspect]
     Dosage: breaking the pill in half to 5mg daily and then breaking in half to 2.5mg daily
     Dates: start: 201103, end: 201107

REACTIONS (5)
  - Tardive dyskinesia [Unknown]
  - Initial insomnia [Unknown]
  - Headache [Unknown]
  - Hyperhidrosis [Unknown]
  - Tremor [Unknown]
